FAERS Safety Report 20817336 (Version 1)
Quarter: 2022Q2

REPORT INFORMATION
  Report Type: Spontaneous
  Country: ES (occurrence: ES)
  Receive Date: 20220512
  Receipt Date: 20220512
  Transmission Date: 20220721
  Serious: Yes (Other)
  Sender: FDA-Public Use
  Company Number: ES-CELLTRION INC.-2022ES003542

PATIENT

DRUGS (9)
  1. RITUXIMAB [Suspect]
     Active Substance: RITUXIMAB
     Indication: Acquired Von Willebrand^s disease
     Dosage: 375 MG/M2, IMMUNOTHERAPY WITH FOUR CYCLES
     Route: 042
  2. FLUDARABINE [Suspect]
     Active Substance: FLUDARABINE PHOSPHATE
     Indication: Acquired Von Willebrand^s disease
     Dosage: UNK
     Route: 065
     Dates: start: 200810
  3. FLUDARABINE [Suspect]
     Active Substance: FLUDARABINE PHOSPHATE
     Indication: Chronic lymphocytic leukaemia
  4. DESMOPRESSIN [Suspect]
     Active Substance: DESMOPRESSIN
     Indication: Acquired Von Willebrand^s disease
     Dosage: UNK
     Route: 065
  5. IBRUTINIB [Suspect]
     Active Substance: IBRUTINIB
     Indication: Acquired Von Willebrand^s disease
     Dosage: UNK
     Route: 065
     Dates: start: 201603
  6. IBRUTINIB [Suspect]
     Active Substance: IBRUTINIB
     Indication: Chronic lymphocytic leukaemia
  7. CYCLOPHOSPHAMIDE [Suspect]
     Active Substance: CYCLOPHOSPHAMIDE
     Indication: Acquired Von Willebrand^s disease
     Dosage: UNK
     Route: 065
     Dates: start: 200810
  8. CYCLOPHOSPHAMIDE [Suspect]
     Active Substance: CYCLOPHOSPHAMIDE
     Indication: Chronic lymphocytic leukaemia
  9. TRANEXAMIC ACID [Concomitant]
     Active Substance: TRANEXAMIC ACID
     Indication: Product used for unknown indication
     Dosage: 1000 MILLIGRAM
     Route: 065

REACTIONS (4)
  - Treatment failure [Unknown]
  - No adverse event [Unknown]
  - Drug ineffective [Unknown]
  - Off label use [Unknown]
